FAERS Safety Report 10846590 (Version 5)
Quarter: 2015Q2

REPORT INFORMATION
  Report Type: Report from Study
  Country: JP (occurrence: JP)
  Receive Date: 20150220
  Receipt Date: 20150402
  Transmission Date: 20150821
  Serious: Yes (Other)
  Sender: FDA-Public Use
  Company Number: JP-JNJFOC-20150213483

PATIENT
  Age: 85 Year
  Sex: Female
  Weight: 53 kg

DRUGS (10)
  1. TAPENTA [Suspect]
     Active Substance: TAPENTADOL HYDROCHLORIDE
     Indication: CANCER PAIN
     Dosage: 25MG, 2 PER DAY
     Route: 048
     Dates: start: 20150129, end: 20150203
  2. OXINORM [Concomitant]
     Active Substance: OXYCODONE HYDROCHLORIDE
     Indication: CANCER PAIN
     Dosage: ONCE A DAY
     Route: 048
     Dates: start: 20150203, end: 20150203
  3. OXINORM [Concomitant]
     Active Substance: OXYCODONE HYDROCHLORIDE
     Indication: CANCER PAIN
     Dosage: TWICE A DAY
     Route: 048
     Dates: start: 20150130, end: 20150130
  4. OXINORM [Concomitant]
     Active Substance: OXYCODONE HYDROCHLORIDE
     Indication: CANCER PAIN
     Dosage: ONCE A DAY
     Route: 048
     Dates: start: 20150131, end: 20150201
  5. LYRICA [Concomitant]
     Active Substance: PREGABALIN
     Indication: CANCER PAIN
     Dosage: ONCE A DAY
     Route: 048
     Dates: start: 20150123, end: 20150127
  6. OXINORM [Concomitant]
     Active Substance: OXYCODONE HYDROCHLORIDE
     Indication: CANCER PAIN
     Dosage: THRICE A DAY
     Route: 048
     Dates: start: 20150208, end: 20150209
  7. LOXONIN [Concomitant]
     Active Substance: LOXOPROFEN SODIUM
     Indication: CANCER PAIN
     Dosage: ONCE A DAY
     Route: 048
     Dates: start: 20141015
  8. OXINORM [Concomitant]
     Active Substance: OXYCODONE HYDROCHLORIDE
     Indication: CANCER PAIN
     Dosage: TWICE A DAY
     Route: 048
     Dates: start: 20150205, end: 20150207
  9. OXINORM [Concomitant]
     Active Substance: OXYCODONE HYDROCHLORIDE
     Indication: CANCER PAIN
     Dosage: TWICE A DAY
     Route: 048
     Dates: start: 20150202, end: 20150202
  10. LYRICA [Concomitant]
     Active Substance: PREGABALIN
     Indication: CANCER PAIN
     Dosage: ONCE A DAY
     Route: 048
     Dates: start: 20150128

REACTIONS (1)
  - Delirium [Not Recovered/Not Resolved]

NARRATIVE: CASE EVENT DATE: 20150203
